FAERS Safety Report 7376422-6 (Version None)
Quarter: 2011Q1

REPORT INFORMATION
  Report Type: 
  Country: None (occurrence: None)
  Receive Date: 20110316
  Receipt Date: 20110309
  Transmission Date: 20110831
  Serious: Yes (Death, Life-Threatening)
  Sender: FDA-Public Use
  Company Number: TPA2011A00874

PATIENT
  Age: 62 Year
  Sex: Female

DRUGS (1)
  1. ACTOS [Suspect]
     Dosage: 30 MG,1 IN 1 D, PER ORAL
     Route: 048

REACTIONS (2)
  - SEPTIC SHOCK [None]
  - INTESTINAL PERFORATION [None]
